FAERS Safety Report 7025682-X (Version None)
Quarter: 2010Q4

REPORT INFORMATION
  Report Type: 
  Country: None (occurrence: None)
  Receive Date: 20101004
  Receipt Date: 20100924
  Transmission Date: 20110411
  Serious: Yes (Disabling)
  Sender: FDA-Public Use
  Company Number: GB-BIOGENIDEC-2010BI016066

PATIENT
  Age: 44 Year
  Sex: Female

DRUGS (2)
  1. TYSABRI [Suspect]
     Indication: MULTIPLE SCLEROSIS
     Route: 042
     Dates: start: 20090320
  2. LEVOTHYROXINE SODIUM [Concomitant]

REACTIONS (1)
  - MUSCULOSKELETAL STIFFNESS [None]
